FAERS Safety Report 12635715 (Version 1)
Quarter: 2016Q3

REPORT INFORMATION
  Report Type: Spontaneous
  Country: ES (occurrence: ES)
  Receive Date: 20160809
  Receipt Date: 20160809
  Transmission Date: 20161109
  Serious: Yes (Hospitalization, Other)
  Sender: FDA-Public Use
  Company Number: ES-GILEAD-2016-0225846

PATIENT
  Sex: Male

DRUGS (3)
  1. ZYDELIG [Suspect]
     Active Substance: IDELALISIB
     Dosage: 100 MG, BID
     Route: 048
  2. ZYDELIG [Suspect]
     Active Substance: IDELALISIB
     Indication: CHRONIC LYMPHOCYTIC LEUKAEMIA
     Dosage: 100 MG, BID
     Route: 048
  3. ZYDELIG [Suspect]
     Active Substance: IDELALISIB
     Dosage: 100 UNK, UNK
     Route: 048

REACTIONS (4)
  - Erythema multiforme [Recovered/Resolved]
  - Aphthous ulcer [Not Recovered/Not Resolved]
  - Febrile neutropenia [Unknown]
  - Pneumonia pseudomonal [Recovered/Resolved]
